FAERS Safety Report 4376138-4 (Version None)
Quarter: 2004Q2

REPORT INFORMATION
  Report Type: 
  Country: None (occurrence: None)
  Receive Date: 20040611
  Receipt Date: 20040603
  Transmission Date: 20050107
  Serious: Yes (Other)
  Sender: FDA-Public Use
  Company Number: US-ROCHE-370189

PATIENT
  Age: 45 Year
  Sex: Male

DRUGS (4)
  1. PEGASYS [Suspect]
     Indication: DRUG USE FOR UNKNOWN INDICATION
     Route: 065
  2. PEGASYS [Suspect]
     Route: 065
  3. COPEGUS [Suspect]
     Indication: DRUG USE FOR UNKNOWN INDICATION
     Route: 065
  4. COPEGUS [Suspect]
     Route: 065

REACTIONS (4)
  - CARDIOMEGALY [None]
  - CELLULITIS [None]
  - COUGH [None]
  - PULMONARY FIBROSIS [None]
